FAERS Safety Report 9909863 (Version 1)
Quarter: 2014Q1

REPORT INFORMATION
  Report Type: Spontaneous
  Country: CZ (occurrence: CZ)
  Receive Date: 20140219
  Receipt Date: 20140219
  Transmission Date: 20141002
  Serious: Yes (Hospitalization)
  Sender: FDA-Public Use
  Company Number: CZ-JNJFOC-20140209851

PATIENT
  Age: 80 Year
  Sex: Male

DRUGS (6)
  1. XARELTO [Suspect]
     Indication: ATRIAL FIBRILLATION
     Route: 048
     Dates: start: 201310, end: 20140205
  2. XARELTO [Suspect]
     Indication: CEREBROVASCULAR ACCIDENT PROPHYLAXIS
     Route: 048
     Dates: start: 201310, end: 20140205
  3. FURON [Concomitant]
     Route: 065
  4. PRESTARIUM NEO [Concomitant]
     Route: 065
  5. VASOCARDIN [Concomitant]
     Route: 065
  6. VEROSPIRON [Concomitant]
     Route: 065

REACTIONS (2)
  - Embolic stroke [Not Recovered/Not Resolved]
  - Atrial thrombosis [Not Recovered/Not Resolved]
